FAERS Safety Report 10170282 (Version 2)
Quarter: 2014Q2

REPORT INFORMATION
  Report Type: Report from Study
  Country: DE (occurrence: DE)
  Receive Date: 20140513
  Receipt Date: 20140519
  Transmission Date: 20141212
  Serious: Yes (Hospitalization)
  Sender: FDA-Public Use
  Company Number: PHHY2014DE056962

PATIENT
  Sex: Male
  Weight: 86 kg

DRUGS (31)
  1. ICL670A [Suspect]
     Indication: IRON OVERLOAD
     Dosage: 1750 MG, UNK
     Dates: start: 20130624, end: 20140508
  2. RAMIPRIL [Concomitant]
     Dosage: 5 MG, DAILY
  3. AMLODIPIN//AMLODIPINE [Concomitant]
     Dosage: 5 MG, DAILY
  4. NITROLINGUAL-SPRAY N [Concomitant]
  5. ACETYLSALICYLIC ACID [Concomitant]
     Dosage: 1 DF, UNK
  6. PREDNISOLONE [Concomitant]
     Dosage: 20 MG, DAILY
     Dates: start: 20120404
  7. FUROSEMIDE [Concomitant]
     Dosage: 20 MG, DAILY
  8. THYRONAJOD [Concomitant]
  9. METFORMIN [Concomitant]
     Dosage: 1000 MG, DAILY
     Dates: end: 20131017
  10. XARELTO [Concomitant]
     Dosage: 20 MG, DAILY
     Dates: end: 20131017
  11. REPAGLINIDE [Concomitant]
     Dosage: 1.5 MG, UNK
  12. VIDAZA [Concomitant]
     Dosage: 151 MG, DAILY
     Dates: start: 20130722
  13. CLOTRIMAZOLE [Concomitant]
     Dates: start: 20130805
  14. IMODIUM [Concomitant]
     Dates: start: 20130819
  15. ZOFRAN [Concomitant]
     Dosage: 8 MG, DAILY
     Route: 042
     Dates: start: 20130903, end: 20130903
  16. ONDANSETRON//ONDANSETRON HYDROCHLORIDE [Concomitant]
     Dosage: 16 MG, UNK
     Dates: start: 20130903
  17. FRAXODI [Concomitant]
     Dosage: 0.8 ML, DAILY
     Route: 058
     Dates: start: 20131018, end: 20131212
  18. FRAXODI [Concomitant]
     Dosage: 0.8 ML, DAILY
     Route: 058
     Dates: start: 20131230, end: 20140121
  19. FRAXODI [Concomitant]
     Dosage: 0.8 ML, DAILY
     Route: 058
     Dates: start: 20140226
  20. FLUCONAZOLE [Concomitant]
     Dosage: 200 MG, DAILY
     Dates: start: 20131018, end: 20131028
  21. PANTOZOL [Concomitant]
     Dosage: 20 MG, DAILY
     Dates: start: 20131018
  22. PASPERTIN                               /GFR/ [Concomitant]
     Dosage: 30 DRP, TID
     Dates: start: 20131017
  23. NEPRESOL [Concomitant]
     Dosage: 100 MG, DAILY
     Dates: start: 20140321
  24. LONOLOX [Concomitant]
     Dosage: 10 MG, DAILY
     Dates: start: 20140327
  25. TAMSULOSINE [Concomitant]
     Dosage: 0.4 MG, DAILY
     Dates: start: 20140329
  26. CLONIDINE [Concomitant]
     Dosage: 450 MG, DAILY
     Dates: start: 20140327
  27. CIPROBAY                           /01429801/ [Concomitant]
     Dosage: 500 MG, DAILY
     Dates: start: 20140429, end: 20140505
  28. CLEXANE [Concomitant]
     Dosage: 0.6 ML, DAILY
     Route: 058
     Dates: start: 20130729, end: 20130802
  29. AMPHO MORONAL [Concomitant]
     Dates: start: 20130805
  30. TAZOBAC [Concomitant]
     Dosage: 13.5 G, DAILY
     Dates: start: 20140318, end: 20140328
  31. CYKLOKAPRON [Concomitant]
     Dosage: 3000 MG, UNK
     Dates: start: 20140410

REACTIONS (4)
  - Pneumonia [Recovered/Resolved]
  - Neck pain [Recovered/Resolved]
  - Osteochondrosis [Not Recovered/Not Resolved]
  - Urinary tract infection [Recovered/Resolved]
